FAERS Safety Report 6337811-1 (Version None)
Quarter: 2009Q3

REPORT INFORMATION
  Report Type: 
  Country: None (occurrence: None)
  Receive Date: 20090902
  Receipt Date: 20090825
  Transmission Date: 20100115
  Serious: Yes (Death, Hospitalization)
  Sender: FDA-Public Use
  Company Number: A0803631A

PATIENT
  Age: 76 Year
  Sex: Male

DRUGS (13)
  1. AVANDIA [Suspect]
     Indication: DIABETES MELLITUS
     Dosage: 4MG TWICE PER DAY
     Route: 048
  2. LABETALOL HCL [Concomitant]
  3. DIOVAN [Concomitant]
  4. GLIMEPIRIDE [Concomitant]
  5. NORVASC [Concomitant]
  6. RENAGEL [Concomitant]
  7. TOPROL-XL [Concomitant]
  8. CLONAZEPAM [Concomitant]
  9. METOCLOPRAMIDE [Concomitant]
  10. BUMETANIDE [Concomitant]
  11. MOTILIUM [Concomitant]
  12. TRIMETHOBENZAMIDE HCL [Concomitant]
  13. LEXAPRO [Concomitant]

REACTIONS (2)
  - DEATH [None]
  - MYOCARDIAL ISCHAEMIA [None]
